FAERS Safety Report 7691053 (Version 5)
Quarter: 2014Q1

REPORT INFORMATION
  Report Type: Report from Study
  Country: CA (occurrence: CA)
  Receive Date: 20101203
  Receipt Date: 20140203
  Transmission Date: 20141002
  Serious: Yes (Life-Threatening, Other)
  Sender: FDA-Public Use
  Company Number: PHHY2010CA80349

PATIENT
  Age: 56 Year
  Sex: Female

DRUGS (8)
  1. ACLASTA [Suspect]
     Indication: OSTEOPOROSIS
     Dosage: YEARLY
     Route: 042
     Dates: start: 20091118
  2. ACLASTA [Suspect]
     Dosage: YEARLY
     Route: 042
     Dates: start: 20110124
  3. ACLASTA [Suspect]
     Dosage: YEARLY
     Route: 042
     Dates: start: 20120126
  4. ACLASTA [Suspect]
     Dosage: YEARLY
     Route: 042
     Dates: start: 20130128
  5. SYNTEST [Concomitant]
     Dosage: UNK
  6. REMERON [Concomitant]
     Dosage: UNK
  7. ALENDRONATE [Concomitant]
     Dosage: UNK
  8. SYNTHROID [Concomitant]
     Dosage: UNK

REACTIONS (11)
  - Metastases to liver [Not Recovered/Not Resolved]
  - Metastatic neoplasm [Not Recovered/Not Resolved]
  - Metastases to bone [Not Recovered/Not Resolved]
  - Acetabulum fracture [Unknown]
  - Pathological fracture [Unknown]
  - Bone lesion [Unknown]
  - Tooth fracture [Not Recovered/Not Resolved]
  - Osteopenia [Not Recovered/Not Resolved]
  - Pain [Unknown]
  - Arthralgia [Unknown]
  - Bone density decreased [Not Recovered/Not Resolved]
